FAERS Safety Report 5422938-9 (Version None)
Quarter: 2007Q3

REPORT INFORMATION
  Report Type: 
  Country: None (occurrence: None)
  Receive Date: 20070820
  Receipt Date: 20070723
  Transmission Date: 20080115
  Serious: Yes (Death, Hospitalization, Other)
  Sender: FDA-Public Use
  Company Number: 2007US-09129

PATIENT
  Age: 55 Year
  Sex: Female

DRUGS (3)
  1. ISOPTIN SR [Suspect]
     Indication: DRUG USE FOR UNKNOWN INDICATION
     Dosage: 120 MG, 100 TABLETS AT ONCE, ORAL
     Route: 048
     Dates: start: 20070601, end: 20070601
  2. LEVOTHYROXINE SODIUM [Suspect]
     Indication: DRUG USE FOR UNKNOWN INDICATION
     Dosage: 75 UG, 20 TABLETS AT ONCE, ORAL
     Route: 048
     Dates: start: 20070601, end: 20070601
  3. DICLOFENAC POTASSIUM [Suspect]
     Indication: DRUG USE FOR UNKNOWN INDICATION
     Dosage: SEVERAL TABLETS AT ONCE, ORAL
     Route: 048
     Dates: start: 20070601, end: 20070601

REACTIONS (20)
  - ANURIA [None]
  - BRADYCARDIA [None]
  - COAGULOPATHY [None]
  - COMPLETED SUICIDE [None]
  - DRUG INTERACTION [None]
  - DRUG TOXICITY [None]
  - EYE HAEMORRHAGE [None]
  - FALL [None]
  - GASTRIC HAEMORRHAGE [None]
  - GASTRIC ULCER [None]
  - HAEMOGLOBIN ABNORMAL [None]
  - INJURY [None]
  - MELAENA [None]
  - METABOLIC DISORDER [None]
  - MULTI-ORGAN FAILURE [None]
  - MULTIPLE DRUG OVERDOSE INTENTIONAL [None]
  - MYDRIASIS [None]
  - PUPIL FIXED [None]
  - PYREXIA [None]
  - SHOCK [None]
